FAERS Safety Report 12494054 (Version 2)
Quarter: 2016Q3

REPORT INFORMATION
  Report Type: Spontaneous
  Country: JP (occurrence: JP)
  Receive Date: 20160623
  Receipt Date: 20160706
  Transmission Date: 20161109
  Serious: Yes (Hospitalization)
  Sender: FDA-Public Use
  Company Number: JP-009507513-1606JPN007724

PATIENT
  Age: 63 Year
  Sex: Male
  Weight: 57 kg

DRUGS (18)
  1. BELSOMRA [Suspect]
     Active Substance: SUVOREXANT
     Indication: INSOMNIA
     Dosage: 20 MG, QD
     Route: 048
     Dates: start: 20151103
  2. AKINETON [Concomitant]
     Active Substance: BIPERIDEN HYDROCHLORIDE
     Indication: PARKINSONISM
     Dosage: 1 MG, QD
     Route: 048
  3. ROHYPNOL [Concomitant]
     Active Substance: FLUNITRAZEPAM
     Dosage: 1 MG, QD
     Route: 048
     Dates: start: 20151126, end: 20151127
  4. SERENACE [Concomitant]
     Active Substance: HALOPERIDOL
     Indication: SCHIZOPHRENIA
     Dosage: 4 MG, TID
     Route: 048
     Dates: start: 20151114, end: 20151210
  5. ROHYPNOL [Concomitant]
     Active Substance: FLUNITRAZEPAM
     Dosage: 0.5 MG, QD
     Route: 048
     Dates: start: 20151128, end: 20151210
  6. GLUCOBAY [Concomitant]
     Active Substance: ACARBOSE
     Indication: TYPE 2 DIABETES MELLITUS
     Dosage: 100 MG, TID
     Route: 048
  7. HEPSERA [Concomitant]
     Active Substance: ADEFOVIR DIPIVOXIL
     Indication: CHRONIC HEPATITIS B
     Dosage: 10 MG, QOD
     Route: 048
  8. TRAZENTA [Concomitant]
     Active Substance: LINAGLIPTIN
     Indication: TYPE 2 DIABETES MELLITUS
     Dosage: 5 MG, QD
     Route: 048
  9. TRESIBA [Concomitant]
     Active Substance: INSULIN DEGLUDEC
     Indication: TYPE 2 DIABETES MELLITUS
     Dosage: 10 (UNDER 1000 UNIT), QD
     Route: 051
  10. DEPAS [Concomitant]
     Active Substance: ETIZOLAM
     Indication: SCHIZOPHRENIA
     Dosage: 0.5 MG, TID
     Route: 048
     Dates: end: 20151118
  11. DEPAS [Concomitant]
     Active Substance: ETIZOLAM
     Dosage: 0.5 MG, BID
     Route: 048
     Dates: start: 20151119, end: 20151215
  12. ROHYPNOL [Concomitant]
     Active Substance: FLUNITRAZEPAM
     Dosage: 1 MG, QD
     Route: 048
     Dates: start: 20151211
  13. LUNESTA [Concomitant]
     Active Substance: ESZOPICLONE
     Indication: INSOMNIA
     Dosage: 1 MG, AS NEEDED, DAILY DOSE UNKNOWN.
     Route: 048
  14. SERENACE [Concomitant]
     Active Substance: HALOPERIDOL
     Dosage: 5 MG, TID
     Route: 048
     Dates: start: 20151211
  15. DEPAS [Concomitant]
     Active Substance: ETIZOLAM
     Dosage: 0.5 MG, TID
     Route: 048
     Dates: start: 20151216
  16. ROHYPNOL [Concomitant]
     Active Substance: FLUNITRAZEPAM
     Indication: INSOMNIA
     Dosage: 3 MG, QD
     Route: 048
     Dates: end: 20151120
  17. ROHYPNOL [Concomitant]
     Active Substance: FLUNITRAZEPAM
     Dosage: 2 MG, QD
     Route: 048
     Dates: start: 20151121, end: 20151125
  18. ZEFIX [Concomitant]
     Active Substance: LAMIVUDINE
     Indication: CHRONIC HEPATITIS B
     Dosage: 50 MG, QD
     Route: 048

REACTIONS (1)
  - Persecutory delusion [Recovering/Resolving]

NARRATIVE: CASE EVENT DATE: 201512
